FAERS Safety Report 12815881 (Version 1)
Quarter: 2016Q4

REPORT INFORMATION
  Report Type: Report from Study
  Country: US (occurrence: US)
  Receive Date: 20161006
  Receipt Date: 20161006
  Transmission Date: 20170207
  Serious: Yes (Hospitalization, Other)
  Sender: FDA-Public Use
  Company Number: US-ROCHE-1545595

PATIENT
  Age: 76 Year
  Sex: Female
  Weight: 55.9 kg

DRUGS (5)
  1. CARBOPLATIN. [Suspect]
     Active Substance: CARBOPLATIN
     Indication: OVARIAN CANCER
     Dosage: DATE OF LAST DOSE ADMINISTERD ON 25/OCT/2014.
     Route: 042
     Dates: start: 20141002, end: 20141025
  2. VELIPARIB [Suspect]
     Active Substance: VELIPARIB
     Indication: OVARIAN CANCER
     Dosage: ON DAYS -2-5. CYCLE 1 AND CYCLES 2-6?DATE OF LAST ADOSE ADMINISTERD 25/OCT/2014.
     Route: 048
     Dates: start: 20141002, end: 20141025
  3. LOVENOX [Suspect]
     Active Substance: ENOXAPARIN SODIUM
     Indication: DEEP VEIN THROMBOSIS
     Route: 065
  4. BEVACIZUMAB [Suspect]
     Active Substance: BEVACIZUMAB
     Indication: OVARIAN CANCER
     Dosage: RECEIVED LAST DOSE OF BEVACIZUMAB (865MG) PRIOR TO SAE ON 25/OCT/2014
     Route: 042
     Dates: start: 20141002, end: 20141025
  5. PACLITAXEL. [Suspect]
     Active Substance: PACLITAXEL
     Indication: OVARIAN CANCER
     Dosage: DATE OF LAST ADOSE ADMINISTERD 25/OCT/2014,
     Route: 042
     Dates: start: 20141002, end: 20141025

REACTIONS (17)
  - Syncope [Recovered/Resolved]
  - Vomiting [Recovered/Resolved]
  - Hypocalcaemia [Unknown]
  - Decreased appetite [Unknown]
  - Nausea [Recovered/Resolved]
  - Hypokalaemia [Unknown]
  - Neutrophil count decreased [Unknown]
  - Hypotension [Unknown]
  - Hypokalaemia [Unknown]
  - Hyponatraemia [Unknown]
  - Hypophosphataemia [Unknown]
  - White blood cell count decreased [Unknown]
  - Rectal haemorrhage [Recovered/Resolved]
  - Pain [Unknown]
  - Anaemia [Unknown]
  - Dehydration [Unknown]
  - Hypophosphataemia [Unknown]

NARRATIVE: CASE EVENT DATE: 20141026
